FAERS Safety Report 5053319-8 (Version None)
Quarter: 2006Q3

REPORT INFORMATION
  Report Type: 
  Country: None (occurrence: None)
  Receive Date: 20060718
  Receipt Date: 20060712
  Transmission Date: 20061208
  Serious: Yes (Hospitalization)
  Sender: FDA-Public Use
  Company Number: HU-SP-2006-01742

PATIENT
  Age: 68 Year
  Sex: Male

DRUGS (17)
  1. IMMUCYST [Suspect]
     Indication: BLADDER CANCER
     Route: 043
     Dates: start: 20051213, end: 20051213
  2. IMMUCYST [Suspect]
     Route: 043
     Dates: start: 20051220, end: 20051220
  3. IMMUCYST [Suspect]
     Route: 043
     Dates: start: 20051227, end: 20051227
  4. IMMUCYST [Suspect]
     Route: 043
     Dates: start: 20060103, end: 20060103
  5. IMMUCYST [Suspect]
     Route: 043
     Dates: start: 20060110, end: 20060110
  6. IMMUCYST [Suspect]
     Route: 043
     Dates: start: 20060117, end: 20060117
  7. IMMUCYST [Suspect]
     Route: 043
     Dates: start: 20060307, end: 20060307
  8. IMMUCYST [Suspect]
     Route: 043
     Dates: start: 20060314, end: 20060314
  9. IMMUCYST [Suspect]
     Route: 043
     Dates: start: 20060321, end: 20060321
  10. IMMUCYST [Suspect]
     Route: 043
     Dates: start: 20060606, end: 20060606
  11. IMMUCYST [Suspect]
     Route: 043
     Dates: start: 20060613, end: 20060613
  12. IMMUCYST [Suspect]
     Route: 043
     Dates: start: 20060620, end: 20060620
  13. BETALOC [Concomitant]
  14. NITROMINT [Concomitant]
  15. EDNYT [Concomitant]
  16. METFORMIN HCL [Concomitant]
  17. DIAPREL [Concomitant]

REACTIONS (3)
  - EPIDIDYMITIS [None]
  - PYREXIA [None]
  - SCROTAL PAIN [None]
